FAERS Safety Report 4483620-8 (Version None)
Quarter: 2004Q4

REPORT INFORMATION
  Report Type: 
  Country: None (occurrence: None)
  Receive Date: 20041021
  Receipt Date: 20041021
  Transmission Date: 20050328
  Serious: Yes (Life-Threatening, Hospitalization)
  Sender: FDA-Public Use
  Company Number: None

PATIENT
  Age: 73 Year
  Sex: Male
  Weight: 65.5 kg

DRUGS (25)
  1. FOSINOPRIL SODIUM [Suspect]
  2. LORAZEPAM SOLN [Concomitant]
  3. OXYCODONE [Concomitant]
  4. ACETAMINOPHEN (INPT-UD) TAB [Concomitant]
  5. PROCHLORPERAZINE TAB [Concomitant]
  6. DM 10 / GUAIFENESIN [Concomitant]
  7. SALSALATE TAB [Concomitant]
  8. SERTRALINE TAB [Concomitant]
  9. OMEPRAZOLE [Concomitant]
  10. ASPIRIN [Concomitant]
  11. MAGNESIUM HYDROXIDE SUSP [Concomitant]
  12. DOCUSATE NA [Concomitant]
  13. GABAPENTIN CAP [Concomitant]
  14. FOSINOPRIL NA TAB [Concomitant]
  15. ATENOLOL [Concomitant]
  16. NITROGLYCERIN [Concomitant]
  17. BISACODYL SUPPL, RTL [Concomitant]
  18. LORATADINE TAB [Concomitant]
  19. INSULIN NPH NUMAN INJ [Concomitant]
  20. MULTIVITAMINS/ZINC (CENTRUM) TAB [Concomitant]
  21. FENTANYL [Concomitant]
  22. INSULIN NPH HUMAN INJ [Concomitant]
  23. ANALGESIC CREAM (IU) [Concomitant]
  24. FLUTICASONE PROP [Concomitant]
  25. LACTULOSE [Concomitant]

REACTIONS (1)
  - HYPERKALAEMIA [None]
